FAERS Safety Report 20538381 (Version 1)
Quarter: 2022Q1

REPORT INFORMATION
  Report Type: Spontaneous
  Country: US (occurrence: US)
  Receive Date: 20220302
  Receipt Date: 20220302
  Transmission Date: 20220423
  Serious: Yes (Other)
  Sender: FDA-Public Use
  Company Number: US-Fresenius Kabi-FK202202301

PATIENT
  Age: 49 Year
  Sex: Male

DRUGS (3)
  1. FLUOROURACIL [Suspect]
     Active Substance: FLUOROURACIL
     Indication: Bladder cancer
     Route: 065
  2. OXALIPLATIN [Suspect]
     Active Substance: OXALIPLATIN
     Indication: Bladder cancer
     Route: 065
  3. LEUCOVORIN [Suspect]
     Active Substance: LEUCOVORIN
     Indication: Bladder cancer
     Route: 065

REACTIONS (3)
  - Peripheral ischaemia [Recovering/Resolving]
  - Necrosis [Recovering/Resolving]
  - Pain in extremity [Recovering/Resolving]
